APPROVED DRUG PRODUCT: TOLTERODINE TARTRATE
Active Ingredient: TOLTERODINE TARTRATE
Strength: 2MG
Dosage Form/Route: CAPSULE, EXTENDED RELEASE;ORAL
Application: A079141 | Product #001 | TE Code: AB
Applicant: TEVA PHARMACEUTICALS USA
Approved: Nov 22, 2016 | RLD: No | RS: No | Type: RX